FAERS Safety Report 19697447 (Version 1)
Quarter: 2021Q3

REPORT INFORMATION
  Report Type: Spontaneous
  Country: US (occurrence: US)
  Receive Date: 20210813
  Receipt Date: 20210813
  Transmission Date: 20211014
  Serious: No
  Sender: FDA-Public Use
  Company Number: None

PATIENT
  Age: 57 Year
  Sex: Male

DRUGS (1)
  1. ABIRATERONE TAB 250MG [Suspect]
     Active Substance: ABIRATERONE
     Route: 048
     Dates: start: 202004

REACTIONS (5)
  - Product physical issue [None]
  - Disease progression [None]
  - Product quality issue [None]
  - Drug ineffective [None]
  - Prostatic specific antigen increased [None]

NARRATIVE: CASE EVENT DATE: 20210813
